FAERS Safety Report 8766710 (Version 2)
Quarter: 2012Q4

REPORT INFORMATION
  Report Type: 
  Country: US (occurrence: US)
  Receive Date: 20120904
  Receipt Date: 20120914
  Transmission Date: 20130627
  Serious: No
  Sender: FDA-Public Use
  Company Number: US-B.I. PHARMACEUTICALS,INC./RIDGEFIELD-2012-BP-20872BP

PATIENT
  Sex: Male

DRUGS (1)
  1. SPIRIVA [Suspect]

REACTIONS (2)
  - Drug ineffective [Unknown]
  - Product quality issue [Unknown]
